FAERS Safety Report 10362822 (Version 1)
Quarter: 2014Q3

REPORT INFORMATION
  Report Type: Spontaneous
  Country: RO (occurrence: RO)
  Receive Date: 20140805
  Receipt Date: 20140805
  Transmission Date: 20150326
  Serious: Yes (Death, Other)
  Sender: FDA-Public Use
  Company Number: RO-TEVA-498378ISR

PATIENT
  Age: 36 Year
  Sex: Female
  Weight: 41.2 kg

DRUGS (2)
  1. OXALIPLATIN. [Suspect]
     Active Substance: OXALIPLATIN
     Indication: MALIGNANT NEOPLASM OF AMPULLA OF VATER
     Dosage: 5 CYCLES OF 150 MG/M2 OVER 120 MINUTES ON DAY 1 IN A 21-DAY CYCLE
     Route: 041
  2. CAPECITABINE [Suspect]
     Active Substance: CAPECITABINE
     Indication: MALIGNANT NEOPLASM OF AMPULLA OF VATER
     Dosage: 5 CYCLES OF 1250 MG/M2 TWICE DAILY FROM DAYS 1-14 IN A 21-DAY CYCLE
     Route: 048

REACTIONS (10)
  - Cardiotoxicity [Fatal]
  - Pancreatitis chronic [Fatal]
  - Thrombocytopenia [Unknown]
  - Vomiting [Unknown]
  - Enteritis [Fatal]
  - Multi-organ failure [Fatal]
  - Hepatic steatosis [Fatal]
  - Anaemia [Unknown]
  - Leukocytosis [Unknown]
  - Diarrhoea [Unknown]
